FAERS Safety Report 6194491-6 (Version None)
Quarter: 2009Q2

REPORT INFORMATION
  Report Type: 
  Country: None (occurrence: None)
  Receive Date: 20090519
  Receipt Date: 20090515
  Transmission Date: 20091009
  Serious: Yes (Life-Threatening)
  Sender: FDA-Public Use
  Company Number: GB-ASTRAZENECA-2009GB01032

PATIENT
  Age: 69 Year
  Sex: Male
  Weight: 75 kg

DRUGS (10)
  1. OMEPRAZOLE [Suspect]
     Indication: GASTROINTESTINAL HAEMORRHAGE
     Dosage: 40MG
     Route: 042
     Dates: start: 20090314, end: 20090317
  2. HEPARIN [Suspect]
     Indication: ACUTE MYOCARDIAL INFARCTION
     Dosage: 2500IU
     Route: 058
     Dates: start: 20090314, end: 20090317
  3. HEPARIN [Suspect]
     Indication: CARDIAC FAILURE
     Dosage: 2500IU
     Route: 058
     Dates: start: 20090314, end: 20090317
  4. BISOPROLOL FUMARATE [Concomitant]
  5. CLOPIDOGREL HYDROGEN SULPHATE [Concomitant]
  6. FRUSEMIDE [Concomitant]
  7. ISOSORBIDE MONONITRATE [Concomitant]
  8. NICORANDIL [Concomitant]
  9. RAMIPRIL [Concomitant]
  10. SIMVASTATIN [Concomitant]

REACTIONS (1)
  - THROMBOCYTOPENIA [None]
